FAERS Safety Report 8684972 (Version 2)
Quarter: 2012Q4

REPORT INFORMATION
  Report Type: 
  Country: US (occurrence: US)
  Receive Date: 20120726
  Receipt Date: 20120907
  Transmission Date: 20130627
  Serious: No
  Sender: FDA-Public Use
  Company Number: US-ASTRAZENECA-2012SE51228

PATIENT
  Age: 60 Year
  Sex: Female

DRUGS (3)
  1. NEXIUM [Suspect]
     Route: 048
  2. CRESTOR [Suspect]
     Route: 048
  3. PRILOSEC [Concomitant]
     Route: 048

REACTIONS (6)
  - Diabetes mellitus [Unknown]
  - Pyrexia [Unknown]
  - Oral herpes [Unknown]
  - Gastric disorder [Unknown]
  - Fatigue [Unknown]
  - Malaise [Unknown]
